FAERS Safety Report 11267332 (Version 1)
Quarter: 2015Q3

REPORT INFORMATION
  Report Type: Spontaneous
  Country: DE (occurrence: DE)
  Receive Date: 20150713
  Receipt Date: 20150713
  Transmission Date: 20151125
  Serious: Yes (Other)
  Sender: FDA-Public Use
  Company Number: PHHY2015DE083445

PATIENT
  Sex: Male

DRUGS (2)
  1. LEPONEX [Suspect]
     Active Substance: CLOZAPINE
     Indication: PARKINSON^S DISEASE
     Dosage: 12.5 MG, QD
     Route: 065
     Dates: start: 20150627
  2. LEPONEX [Suspect]
     Active Substance: CLOZAPINE
     Dosage: 125 MG, QD
     Route: 065

REACTIONS (2)
  - Off label use [Unknown]
  - Haematopoietic neoplasm [Unknown]

NARRATIVE: CASE EVENT DATE: 2015
